FAERS Safety Report 4335693-0 (Version None)
Quarter: 2004Q2

REPORT INFORMATION
  Report Type: 
  Country: None (occurrence: None)
  Receive Date: 20040409
  Receipt Date: 20040209
  Transmission Date: 20050107
  Serious: Yes (Hospitalization)
  Sender: FDA-Public Use
  Company Number: PT-GLAXOSMITHKLINE-B0322819A

PATIENT
  Age: 67 Year

DRUGS (4)
  1. LANOXIN [Suspect]
     Indication: CARDIAC FAILURE CONGESTIVE
     Dosage: .125MG PER DAY
     Route: 048
     Dates: end: 20040101
  2. TRAMADOL HCL [Concomitant]
     Indication: DRUG USE FOR UNKNOWN INDICATION
     Route: 065
  3. CISAPRIDE ANHYDRICUM [Concomitant]
     Indication: DRUG USE FOR UNKNOWN INDICATION
     Route: 065
  4. CLARITHROMYCIN [Concomitant]
     Indication: DRUG USE FOR UNKNOWN INDICATION
     Dosage: 1000MG PER DAY
     Route: 065
     Dates: start: 20031230

REACTIONS (4)
  - DRUG INTERACTION [None]
  - DYSARTHRIA [None]
  - PROSTRATION [None]
  - THERAPEUTIC AGENT TOXICITY [None]
